FAERS Safety Report 17754718 (Version 2)
Quarter: 2020Q2

REPORT INFORMATION
  Report Type: Spontaneous
  Country: US (occurrence: US)
  Receive Date: 20200507
  Receipt Date: 20200518
  Transmission Date: 20200714
  Serious: Yes (Hospitalization)
  Sender: FDA-Public Use
  Company Number: US-ACTELION-A-US2020-204842

PATIENT
  Age: 52 Year
  Sex: Male
  Weight: 76.19 kg

DRUGS (5)
  1. CARDIZEM [Concomitant]
     Active Substance: DILTIAZEM HYDROCHLORIDE
     Dosage: 120 MG, QD
     Dates: start: 20200423
  2. REMODULIN [Concomitant]
     Active Substance: TREPROSTINIL
     Dosage: 50.6 NG/KG, PER MIN
     Route: 058
     Dates: start: 201312
  3. OPSUMIT [Suspect]
     Active Substance: MACITENTAN
     Indication: PULMONARY ARTERIAL HYPERTENSION
     Dosage: 10 MG, QD
     Route: 048
     Dates: start: 201701
  4. TADALAFIL. [Concomitant]
     Active Substance: TADALAFIL
     Dosage: 40 MG, QD
     Dates: start: 201405
  5. TORSEMIDE. [Concomitant]
     Active Substance: TORSEMIDE
     Dosage: 40 MG, BID

REACTIONS (6)
  - Cardiac failure acute [Recovering/Resolving]
  - Treatment noncompliance [Recovering/Resolving]
  - Continuous positive airway pressure [Recovering/Resolving]
  - Tachycardia [Recovering/Resolving]
  - Product administration error [Recovering/Resolving]
  - Dyspnoea [Recovering/Resolving]

NARRATIVE: CASE EVENT DATE: 20200422
